FAERS Safety Report 21057651 (Version 1)
Quarter: 2022Q3

REPORT INFORMATION
  Report Type: Spontaneous
  Country: CN (occurrence: CN)
  Receive Date: 20220708
  Receipt Date: 20220708
  Transmission Date: 20221027
  Serious: Yes (Other)
  Sender: FDA-Public Use
  Company Number: CN-ROCHE-3129073

PATIENT
  Age: 71 Year
  Sex: Female
  Weight: 62 kg

DRUGS (2)
  1. ERLOTINIB [Suspect]
     Active Substance: ERLOTINIB
     Indication: Pancreatic carcinoma
     Route: 048
     Dates: start: 20220412, end: 20220520
  2. GIMERACIL\OTERACIL\TEGAFUR [Concomitant]
     Active Substance: GIMERACIL\OTERACIL\TEGAFUR
     Indication: Pancreatic carcinoma
     Route: 048
     Dates: start: 20220412, end: 20220524

REACTIONS (5)
  - Mouth ulceration [Recovering/Resolving]
  - Epistaxis [Recovered/Resolved]
  - Palatal swelling [Recovering/Resolving]
  - Chapped lips [Recovering/Resolving]
  - Off label use [Unknown]

NARRATIVE: CASE EVENT DATE: 20220412
